FAERS Safety Report 8708968 (Version 3)
Quarter: 2012Q4

REPORT INFORMATION
  Report Type: 
  Country: US (occurrence: US)
  Receive Date: 20120806
  Receipt Date: 20120917
  Transmission Date: 20130627
  Serious: Yes (Death, Hospitalization, Other)
  Sender: FDA-Public Use
  Company Number: US-PFIZER INC-2012184234

PATIENT
  Age: 90 Year
  Sex: Female

DRUGS (17)
  1. REVATIO [Suspect]
     Indication: PULMONARY HYPERTENSION
     Dosage: 20 mg, 3x/day (1 tablet)
     Route: 048
     Dates: start: 20090218, end: 20120725
  2. TYLENOL [Concomitant]
     Indication: PAIN
     Dosage: 500 mg, 1-2 tablets by mouth three times a day as needed
     Route: 048
  3. TYLENOL [Concomitant]
     Indication: PYREXIA
  4. ZYLOPRIM [Concomitant]
     Dosage: 300 mg, one-half tablet by mouth one time daily
     Route: 048
  5. CITRACAL + D [Concomitant]
     Dosage: 315-200 mg-unit tablet 1 TABLET by mouth one time daily
     Route: 048
  6. COUMADINE [Concomitant]
     Dosage: 2 mg tablet 1.5-2 tablets by mouth one time daily, (alternating 3mg with 4mg QOD)
     Route: 048
  7. VITAMIN B12 [Concomitant]
     Dosage: 1000 ug, 1 TABLET by mouth one time daily
     Route: 048
  8. DILAUDID [Concomitant]
     Indication: PAIN
     Dosage: 1 mg/mL Liquid 0.5-1 mL by mouth as directed
     Route: 048
  9. DILAUDID [Concomitant]
     Indication: DYSPNOEA
  10. DILAUDID [Concomitant]
     Indication: ANXIETY
  11. KLOR-CON [Concomitant]
     Dosage: 10 mEq tablet sustained release 2 tablets by mouth two times a day
     Route: 048
  12. LASIX [Concomitant]
     Dosage: 40 mg, 2.5 tablets by mouth two times a day
     Route: 048
  13. LEVOTHROID [Concomitant]
     Dosage: 50 ug, 1 TABLET by mouth daily before AM meal
     Route: 048
  14. ZAROXOLYN [Concomitant]
     Dosage: 5 mg, 1 TABLET by mouth as directed
     Route: 048
  15. LOPRESSOR [Concomitant]
     Dosage: 12.5 mg, 2x/day
     Route: 048
  16. REMERON [Concomitant]
     Dosage: 7.5 mg, 1 TABLET by mouth every bedtime
     Route: 048
  17. MULTIVITAMINS [Concomitant]
     Dosage: 1 tablet by mouth one time daily

REACTIONS (10)
  - Disease progression [Fatal]
  - Pulmonary hypertension [Fatal]
  - Cardiac failure congestive [Unknown]
  - Renal failure acute [Unknown]
  - Generalised oedema [Unknown]
  - Dyspnoea [Unknown]
  - Gout [Unknown]
  - Cough [Unknown]
  - Constipation [Unknown]
  - Intertrigo [Unknown]
